FAERS Safety Report 5287259-6 (Version None)
Quarter: 2007Q1

REPORT INFORMATION
  Report Type: 
  Country: None (occurrence: None)
  Receive Date: 20070116
  Receipt Date: 20061006
  Transmission Date: 20070707
  Serious: No
  Sender: FDA-Public Use
  Company Number: 2006SP003576

PATIENT
  Age: 85 Year
  Sex: Male
  Weight: 85.0494 kg

DRUGS (7)
  1. LUNESTA [Suspect]
     Indication: INSOMNIA
     Dosage: ORAL
     Route: 048
     Dates: start: 20060901, end: 20060901
  2. LUNESTA [Suspect]
     Indication: INSOMNIA
     Dosage: ORAL
     Route: 048
     Dates: start: 20061001
  3. ATIVAN [Concomitant]
  4. TAMSULOSIN HCL [Concomitant]
  5. AVODART [Concomitant]
  6. CARBIDOPA W/ LEVODOPA [Concomitant]
  7. PAXIL [Concomitant]

REACTIONS (1)
  - INSOMNIA [None]
